FAERS Safety Report 10679740 (Version 1)
Quarter: 2014Q4

REPORT INFORMATION
  Report Type: Spontaneous
  Country: US (occurrence: US)
  Receive Date: 20141229
  Receipt Date: 20141229
  Transmission Date: 20150529
  Serious: No
  Sender: FDA-Public Use
  Company Number: US-GLAXOSMITHKLINE-US2014022791

PATIENT
  Sex: Female

DRUGS (3)
  1. ABREVA [Suspect]
     Active Substance: DOCOSANOL
     Indication: ORAL HERPES
     Dosage: UNK
     Route: 061
     Dates: start: 20141114
  2. ABREVA [Suspect]
     Active Substance: DOCOSANOL
  3. ABREVA [Suspect]
     Active Substance: DOCOSANOL

REACTIONS (2)
  - Circumoral oedema [Not Recovered/Not Resolved]
  - Product quality issue [Unknown]
